FAERS Safety Report 17127588 (Version 1)
Quarter: 2019Q4

REPORT INFORMATION
  Report Type: Spontaneous
  Country: IT (occurrence: IT)
  Receive Date: 20191209
  Receipt Date: 20191209
  Transmission Date: 20200122
  Serious: Yes (Hospitalization, Other)
  Sender: FDA-Public Use
  Company Number: IT-ACCORD-163761

PATIENT
  Age: 71 Year
  Sex: Male
  Weight: 74 kg

DRUGS (4)
  1. WARFARIN [Suspect]
     Active Substance: WARFARIN
     Indication: ATRIAL FIBRILLATION
  2. ENOXAPARIN [Suspect]
     Active Substance: ENOXAPARIN
     Indication: ATRIAL FIBRILLATION
     Dosage: DOSE: 6000 UIU, BID
  3. CLOPIDOGREL [Suspect]
     Active Substance: CLOPIDOGREL BISULFATE
     Indication: ATRIAL FIBRILLATION
     Dosage: 75 MG, QD
  4. ACETYLSALICYLIC ACID [Suspect]
     Active Substance: ASPIRIN
     Indication: ATRIAL FIBRILLATION
     Dosage: 100 MG, QD

REACTIONS (8)
  - Cyanosis [Recovered/Resolved]
  - Abdominal wall haematoma [Recovered/Resolved]
  - Cough [Recovered/Resolved]
  - Petechiae [Recovered/Resolved]
  - Cullen^s sign [Recovered/Resolved]
  - Abdominal pain [Recovered/Resolved]
  - Intra-abdominal haematoma [Recovered/Resolved]
  - Arterial haemorrhage [Recovered/Resolved]
